FAERS Safety Report 10446907 (Version 1)
Quarter: 2014Q3

REPORT INFORMATION
  Report Type: Spontaneous
  Country: US (occurrence: None)
  Receive Date: 20140910
  Receipt Date: 20140910
  Transmission Date: 20150326
  Serious: Yes (Other)
  Sender: FDA-Public Use
  Company Number: None

PATIENT
  Age: 19 Year
  Sex: Female
  Weight: 66.68 kg

DRUGS (1)
  1. LUTERA [Suspect]
     Active Substance: ETHINYL ESTRADIOL\LEVONORGESTREL
     Dosage: 1 PILL
     Route: 048

REACTIONS (5)
  - Dyspnoea [None]
  - Discomfort [None]
  - Palpitations [None]
  - Chest pain [None]
  - Cardiac disorder [None]

NARRATIVE: CASE EVENT DATE: 20140822
